FAERS Safety Report 4332453-1 (Version None)
Quarter: 2004Q2

REPORT INFORMATION
  Report Type: 
  Country: None (occurrence: None)
  Receive Date: 20040401
  Receipt Date: 20040323
  Transmission Date: 20050107
  Serious: Yes (Hospitalization)
  Sender: FDA-Public Use
  Company Number: TPG2004A00070

PATIENT
  Age: 76 Year
  Sex: Female

DRUGS (4)
  1. ACTOS [Suspect]
     Indication: DIABETES MELLITUS NON-INSULIN-DEPENDENT
     Dosage: 15 MG (15 MG, 1 IN 1 D)
     Route: 048
     Dates: start: 20040107, end: 20040208
  2. EBIXA (MEMANTINE HYDROCHLORIDE) [Suspect]
     Indication: DEMENTIA ALZHEIMER'S TYPE
     Dosage: 20 MG
     Route: 048
     Dates: start: 20040107, end: 20040208
  3. ARICEPT [Concomitant]
  4. DISTRANEURIN [Concomitant]

REACTIONS (2)
  - EOSINOPHILIA [None]
  - RASH [None]
